FAERS Safety Report 20732563 (Version 1)
Quarter: 2022Q2

REPORT INFORMATION
  Report Type: Spontaneous
  Country: FR (occurrence: FR)
  Receive Date: 20220420
  Receipt Date: 20220420
  Transmission Date: 20220720
  Serious: Yes (Other)
  Sender: FDA-Public Use
  Company Number: FR-ALXN-A202204734

PATIENT
  Age: 18 Year
  Sex: Female

DRUGS (1)
  1. SOLIRIS [Suspect]
     Active Substance: ECULIZUMAB
     Indication: Neuromyelitis optica spectrum disorder
     Dosage: UNK
     Route: 065
     Dates: start: 202106

REACTIONS (5)
  - Neuromyelitis optica spectrum disorder [Unknown]
  - Condition aggravated [Unknown]
  - Diaphragmatic disorder [Unknown]
  - Suspected COVID-19 [Recovered/Resolved]
  - Complement factor abnormal [Unknown]

NARRATIVE: CASE EVENT DATE: 20220101
